FAERS Safety Report 18767966 (Version 2)
Quarter: 2022Q1

REPORT INFORMATION
  Report Type: Spontaneous
  Country: US (occurrence: US)
  Receive Date: 20210121
  Receipt Date: 20220108
  Transmission Date: 20220424
  Serious: No
  Sender: FDA-Public Use
  Company Number: US-ELI_LILLY_AND_COMPANY-US202101007172

PATIENT
  Sex: Female

DRUGS (1)
  1. LYUMJEV [Suspect]
     Active Substance: INSULIN LISPRO-AABC
     Indication: Product used for unknown indication
     Dosage: UNK UNK, UNKNOWN
     Route: 065
     Dates: start: 20200801

REACTIONS (3)
  - Infusion site discomfort [Recovered/Resolved]
  - Infusion site pain [Recovered/Resolved]
  - Wrong technique in product usage process [Unknown]
